FAERS Safety Report 9119514 (Version 2)
Quarter: 2013Q1

REPORT INFORMATION
  Report Type: Report from Study
  Country: IT (occurrence: IT)
  Receive Date: 20130226
  Receipt Date: 20130313
  Transmission Date: 20140127
  Serious: Yes (Other)
  Sender: FDA-Public Use
  Company Number: IT-BAYER-2013-023805

PATIENT
  Age: 46 Year
  Sex: Male

DRUGS (2)
  1. BETAFERON [Suspect]
     Dosage: 250 ?G, UNK
     Route: 058
  2. COTAREG [Concomitant]
     Indication: HYPERTENSION

REACTIONS (2)
  - Circulatory collapse [Recovered/Resolved]
  - Incorrect route of drug administration [None]
